FAERS Safety Report 17199001 (Version 2)
Quarter: 2019Q4

REPORT INFORMATION
  Report Type: Report from Study
  Country: IT (occurrence: IT)
  Receive Date: 20191225
  Receipt Date: 20191227
  Transmission Date: 20200122
  Serious: Yes (Hospitalization)
  Sender: FDA-Public Use
  Company Number: IT-AMGEN-ITACT2019174298

PATIENT
  Age: 53 Year
  Sex: Female
  Weight: 80 kg

DRUGS (9)
  1. FOLINIC ACID [Suspect]
     Active Substance: LEUCOVORIN
     Indication: COLORECTAL CANCER METASTATIC
     Dosage: 360 MILLIGRAM, 1D/W0
     Route: 042
     Dates: start: 20191010
  2. 5-FLUOROURACIL [FLUOROURACIL] [Suspect]
     Active Substance: FLUOROURACIL
     Dosage: 3360 MILLIGRAM PER 46 HOURS/W0
     Route: 042
     Dates: start: 20191010
  3. DOXICICLINA [DOXYCYCLINE] [Concomitant]
     Indication: PROPHYLAXIS
     Dosage: 100 MILLIGRAM, QD
     Route: 048
     Dates: start: 20190513
  4. CETRIZINE [Concomitant]
     Active Substance: CETIRIZINE HYDROCHLORIDE
     Indication: PROPHYLAXIS
  5. PANITUMUMAB [Suspect]
     Active Substance: PANITUMUMAB
     Indication: COLORECTAL CANCER METASTATIC
     Dosage: 480 MILLIGRAM, 1D/W0
     Route: 042
     Dates: start: 20191010
  6. 5-FLUOROURACIL [FLUOROURACIL] [Suspect]
     Active Substance: FLUOROURACIL
     Indication: COLORECTAL CANCER METASTATIC
     Dosage: 560 MILLIGRAM, 1D/W0
     Route: 040
     Dates: start: 20191010
  7. IRINOTECAN [Suspect]
     Active Substance: IRINOTECAN
     Indication: COLORECTAL CANCER METASTATIC
     Dosage: 250 MILLIGRAM, 1D/W0
     Route: 042
     Dates: start: 20191010
  8. OMEPRAZOLE. [Concomitant]
     Active Substance: OMEPRAZOLE
     Indication: PROPHYLAXIS
     Dosage: 20 MILLIGRAM, QD
     Route: 048
     Dates: start: 20180501
  9. CETRIZINE [Concomitant]
     Active Substance: CETIRIZINE HYDROCHLORIDE
     Indication: ERYTHEMA MULTIFORME
     Dosage: 10 MILLIGRAM, QD
     Route: 048
     Dates: start: 20181211

REACTIONS (1)
  - Anaemia [Recovered/Resolved]

NARRATIVE: CASE EVENT DATE: 20191015
